FAERS Safety Report 15090066 (Version 1)
Quarter: 2018Q2

REPORT INFORMATION
  Report Type: Report from Study
  Country: US (occurrence: US)
  Receive Date: 20180629
  Receipt Date: 20180629
  Transmission Date: 20180711
  Serious: Yes (Hospitalization, Other)
  Sender: FDA-Public Use
  Company Number: US-GILEAD-2018-0347051

PATIENT
  Sex: Female

DRUGS (2)
  1. CEFTAZIDIME. [Suspect]
     Active Substance: CEFTAZIDIME
     Indication: PRODUCT USED FOR UNKNOWN INDICATION
     Dosage: UNKNOWN-MEDICATION PROVIDED WHILE PATIENT HOSPITALIZED
     Route: 042
  2. AZTREONAM LYSINE [Suspect]
     Active Substance: AZTREONAM LYSINE
     Indication: PRODUCT USED FOR UNKNOWN INDICATION
     Dosage: UNK, TID, QOM
     Route: 055
     Dates: start: 20151006

REACTIONS (5)
  - Pneumonia [Unknown]
  - Lower respiratory tract infection bacterial [Unknown]
  - Drug hypersensitivity [Unknown]
  - Vomiting [Unknown]
  - Weight decreased [Unknown]
